FAERS Safety Report 5919987-0 (Version None)
Quarter: 2008Q4

REPORT INFORMATION
  Report Type: 
  Country: None (occurrence: None)
  Receive Date: 20081014
  Receipt Date: 20070724
  Transmission Date: 20090506
  Serious: Yes (Disabling)
  Sender: FDA-Public Use
  Company Number: 200700191

PATIENT
  Age: 43 Year
  Sex: Female

DRUGS (1)
  1. SEPTOCAINE [Suspect]
     Indication: LOCAL ANAESTHESIA
     Dosage: DENTAL
     Route: 004

REACTIONS (3)
  - ANAESTHETIC COMPLICATION [None]
  - BLINDNESS UNILATERAL [None]
  - RETINAL ARTERY SPASM [None]
